FAERS Safety Report 4672924-1 (Version None)
Quarter: 2005Q2

REPORT INFORMATION
  Report Type: 
  Country: None (occurrence: None)
  Receive Date: 20050524
  Receipt Date: 20050511
  Transmission Date: 20051028
  Serious: Yes (Other)
  Sender: FDA-Public Use
  Company Number: 2005074963

PATIENT
  Age: 62 Year
  Sex: Male
  Weight: 92.9874 kg

DRUGS (1)
  1. SUDAFED 12 HOUR [Suspect]
     Indication: POSTNASAL DRIP
     Dosage: 1 TAB 3 TIMES A WEEK PRN ORAL
     Route: 048
     Dates: start: 20030101

REACTIONS (4)
  - BLOOD PRESSURE INCREASED [None]
  - ERECTILE DYSFUNCTION [None]
  - SPERM ANALYSIS ABNORMAL [None]
  - STRESS [None]
